FAERS Safety Report 15659489 (Version 2)
Quarter: 2018Q4

REPORT INFORMATION
  Report Type: Report from Study
  Country: CA (occurrence: CA)
  Receive Date: 20181127
  Receipt Date: 20181206
  Transmission Date: 20190205
  Serious: Yes (Other)
  Sender: FDA-Public Use
  Company Number: CA-EMD SERONO-9054964

PATIENT
  Sex: Male

DRUGS (1)
  1. SAIZEN [Suspect]
     Active Substance: SOMATROPIN
     Indication: PRODUCT USED FOR UNKNOWN INDICATION
     Dosage: SAIZEN: EASYPOD ELECTRONIC AUTOINJECTOR
     Route: 058
     Dates: start: 20180428

REACTIONS (1)
  - Chronic kidney disease [Not Recovered/Not Resolved]
